FAERS Safety Report 13103177 (Version 2)
Quarter: 2017Q1

REPORT INFORMATION
  Report Type: Report from Study
  Country: KR (occurrence: KR)
  Receive Date: 20170110
  Receipt Date: 20170113
  Transmission Date: 20170428
  Serious: Yes (Hospitalization, Other)
  Sender: FDA-Public Use
  Company Number: KR-GILEAD-2017-0252458

PATIENT
  Age: 56 Year
  Sex: Male
  Weight: 60 kg

DRUGS (3)
  1. URSA [Concomitant]
     Indication: CHRONIC HEPATITIS B
     Dosage: UNK
     Dates: start: 201609
  2. PREGREL [Concomitant]
     Indication: ACUTE MYOCARDIAL INFARCTION
     Dosage: UNK
     Dates: start: 201411
  3. TENOFOVIR DISOPROXIL FUMARATE. [Suspect]
     Active Substance: TENOFOVIR DISOPROXIL FUMARATE
     Indication: CHRONIC HEPATITIS B
     Dosage: 300 MG, QD
     Route: 048
     Dates: start: 20140204

REACTIONS (2)
  - Malignant ascites [Not Recovered/Not Resolved]
  - Tuberculous pleurisy [Recovering/Resolving]

NARRATIVE: CASE EVENT DATE: 20161128
